FAERS Safety Report 6567725-3 (Version None)
Quarter: 2010Q1

REPORT INFORMATION
  Report Type: 
  Country: None (occurrence: None)
  Receive Date: 20100203
  Receipt Date: 20100122
  Transmission Date: 20100710
  Serious: Yes (Hospitalization)
  Sender: FDA-Public Use
  Company Number: US-PFIZER INC-2010009727

PATIENT
  Sex: Female

DRUGS (1)
  1. GEMFIBROZIL [Suspect]

REACTIONS (1)
  - ADVERSE EVENT [None]
